FAERS Safety Report 17487626 (Version 2)
Quarter: 2020Q2

REPORT INFORMATION
  Report Type: Spontaneous
  Country: JP (occurrence: JP)
  Receive Date: 20200303
  Receipt Date: 20200410
  Transmission Date: 20200713
  Serious: Yes (Other)
  Sender: FDA-Public Use
  Company Number: JP-PFIZER INC-2019533197

PATIENT
  Age: 75 Year
  Sex: Male

DRUGS (1)
  1. SUTENT [Suspect]
     Active Substance: SUNITINIB MALATE
     Indication: RENAL CELL CARCINOMA
     Dosage: 37.5 MG, 1X/DAY
     Route: 048
     Dates: start: 20180529, end: 20190310

REACTIONS (5)
  - Cholangitis acute [Unknown]
  - Neoplasm progression [Not Recovered/Not Resolved]
  - Taste disorder [Recovered/Resolved]
  - Malaise [Recovered/Resolved]
  - Liver abscess [Unknown]

NARRATIVE: CASE EVENT DATE: 20180730
